FAERS Safety Report 6122519-8 (Version None)
Quarter: 2009Q1

REPORT INFORMATION
  Report Type: 
  Country: None (occurrence: None)
  Receive Date: 20090318
  Receipt Date: 20081204
  Transmission Date: 20090719
  Serious: No
  Sender: FDA-Public Use
  Company Number: US-ASTRAZENECA-2008UW27134

PATIENT
  Sex: Female

DRUGS (5)
  1. SYMBICORT [Suspect]
     Dosage: 80/4.5
     Route: 055
  2. NEXIUM [Concomitant]
     Route: 048
  3. ZYRTEC [Concomitant]
  4. RHINOCORT [Concomitant]
     Route: 045
  5. LO/OVRAL [Concomitant]

REACTIONS (2)
  - ARRHYTHMIA [None]
  - HEART RATE INCREASED [None]
